FAERS Safety Report 23766989 (Version 1)
Quarter: 2024Q2

REPORT INFORMATION
  Report Type: Spontaneous
  Country: US (occurrence: None)
  Receive Date: 20240419
  Receipt Date: 20240419
  Transmission Date: 20240716
  Serious: Yes (Life-Threatening)
  Sender: FDA-Public Use
  Company Number: None

PATIENT
  Age: 51 Year
  Sex: Female

DRUGS (1)
  1. BOTOX [Suspect]
     Active Substance: ONABOTULINUMTOXINA
     Dosage: OTHER QUANTITY : 50 UNITS VIAL;?
     Dates: start: 20240206, end: 20240206

REACTIONS (14)
  - Headache [None]
  - Headache [None]
  - Injection site bruising [None]
  - Dry eye [None]
  - Neck pain [None]
  - Arthralgia [None]
  - Speech disorder [None]
  - Throat tightness [None]
  - Fatigue [None]
  - Grip strength decreased [None]
  - Drooling [None]
  - Impaired driving ability [None]
  - Vision blurred [None]
  - Urinary incontinence [None]

NARRATIVE: CASE EVENT DATE: 20240216
